FAERS Safety Report 8365409-2 (Version None)
Quarter: 2012Q2

REPORT INFORMATION
  Report Type: 
  Country: None (occurrence: None)
  Receive Date: 20120516
  Receipt Date: 20120510
  Transmission Date: 20120825
  Serious: Yes (Other)
  Sender: FDA-Public Use
  Company Number: AU-B.I. PHARMACEUTICALS,INC./RIDGEFIELD-2012-AU-00885AU

PATIENT
  Sex: Female

DRUGS (4)
  1. LEVOTHYROXINE SODIUM [Concomitant]
  2. PRADAXA [Suspect]
     Dates: start: 20110810, end: 20111223
  3. LASIX [Concomitant]
  4. LIPITOR [Concomitant]

REACTIONS (1)
  - CEREBROVASCULAR ACCIDENT [None]
